FAERS Safety Report 9290611 (Version 4)
Quarter: 2013Q2

REPORT INFORMATION
  Report Type: Spontaneous
  Country: JP (occurrence: JP)
  Receive Date: 20130515
  Receipt Date: 20130613
  Transmission Date: 20140414
  Serious: Yes (Hospitalization)
  Sender: FDA-Public Use
  Company Number: JP-PFIZER INC-2013138649

PATIENT
  Age: 52 Year
  Sex: Female
  Weight: 55.3 kg

DRUGS (2)
  1. CISPLATIN [Suspect]
     Indication: OESOPHAGEAL CARCINOMA
     Dosage: 80 MG/M2 ON DAY 1
     Route: 065
  2. FLUOROURACIL [Suspect]
     Indication: OESOPHAGEAL CARCINOMA
     Dosage: 800 MG/M2, CYCLIC
     Route: 042

REACTIONS (2)
  - Hyponatraemia [Recovering/Resolving]
  - Renal salt-wasting syndrome [Recovering/Resolving]
